FAERS Safety Report 20683885 (Version 1)
Quarter: 2022Q2

REPORT INFORMATION
  Report Type: Spontaneous
  Country: US (occurrence: None)
  Receive Date: 20220405
  Receipt Date: 20220405
  Transmission Date: 20220721
  Serious: No
  Sender: FDA-Public Use
  Company Number: None

PATIENT
  Sex: Female

DRUGS (3)
  1. CYCLOSPORINE MODIFIED [Suspect]
     Active Substance: CYCLOSPORINE
     Indication: Left ventricular failure
     Dosage: TAKE 1 CAPSULE (25 MG TOTAL) BY MOUTH 2 (TWO) TIMES DAILY. TAKE ALONG WITH A 50MG CAPSULE. TOTAL DAI
     Route: 048
     Dates: start: 20210924
  2. CYCLOSPORINE MODIFIED [Suspect]
     Active Substance: CYCLOSPORINE
     Indication: Left ventricular failure
  3. CYCLOSPORINE  MODIFIED [Concomitant]

REACTIONS (2)
  - Illness [None]
  - Emergency care [None]
